FAERS Safety Report 4343148-2 (Version None)
Quarter: 2004Q2

REPORT INFORMATION
  Report Type: 
  Country: None (occurrence: None)
  Receive Date: 20040419
  Receipt Date: 20040407
  Transmission Date: 20050107
  Serious: Yes (Hospitalization)
  Sender: FDA-Public Use
  Company Number: D01200401210

PATIENT
  Age: 72 Year
  Sex: Male

DRUGS (9)
  1. (SR 7746 OR PLACEBO)  - CAPSULE - 1MG [Suspect]
     Indication: NEUROTOXICITY
     Dosage: ORAL
     Route: 048
     Dates: start: 20031020, end: 20040406
  2. OXALIPLATIN - SOLUTION - 85 MG/M2 [Suspect]
     Dosage: SEE IMAGE
     Dates: start: 20040405, end: 20040405
  3. FLUOROURACIL [Suspect]
     Dosage: 200 MG/M2 AS 2 HOURS INFUSION ON D1-D2 Q2W
     Route: 042
     Dates: start: 20040405, end: 20040405
  4. TROPISETRON HYDROCHLORIDE [Concomitant]
  5. DEXAMETHASONE [Concomitant]
  6. SALBUTAMOL SULFATE [Concomitant]
  7. VENLAFAXINE HCL [Concomitant]
  8. ACETAMINOPHEN [Concomitant]
  9. CETIRIZINE HCL [Concomitant]

REACTIONS (2)
  - C-REACTIVE PROTEIN INCREASED [None]
  - SEPSIS [None]
